FAERS Safety Report 24859951 (Version 2)
Quarter: 2025Q2

REPORT INFORMATION
  Report Type: Report from Study
  Country: US (occurrence: US)
  Receive Date: 20250119
  Receipt Date: 20250411
  Transmission Date: 20250716
  Serious: Yes (Other)
  Sender: ABBVIE
  Company Number: US-ABBVIE-6090471

PATIENT
  Age: 61 Year
  Sex: Male

DRUGS (4)
  1. SKYRIZI [Suspect]
     Active Substance: RISANKIZUMAB-RZAA
     Indication: Psoriatic arthropathy
     Route: 058
     Dates: start: 20240406, end: 20240406
  2. SKYRIZI [Suspect]
     Active Substance: RISANKIZUMAB-RZAA
     Route: 058
     Dates: start: 20240504, end: 20240504
  3. SKYRIZI [Suspect]
     Active Substance: RISANKIZUMAB-RZAA
     Dosage: FORM STRENGTH:150MG/ML,
     Route: 058
     Dates: start: 20241019
  4. SKYRIZI [Suspect]
     Active Substance: RISANKIZUMAB-RZAA
     Dosage: FORM STRENGTH:150MG/ML, WEEK 16
     Route: 058
     Dates: start: 20240727, end: 20240727

REACTIONS (6)
  - Gingival cyst [Recovering/Resolving]
  - Dyspnoea [Unknown]
  - Viral upper respiratory tract infection [Unknown]
  - Palpitations [Unknown]
  - Ventricular extrasystoles [Recovering/Resolving]
  - Bundle branch block left [Recovering/Resolving]

NARRATIVE: CASE EVENT DATE: 20250201
